FAERS Safety Report 12281281 (Version 1)
Quarter: 2016Q2

REPORT INFORMATION
  Report Type: Spontaneous
  Country: US (occurrence: None)
  Receive Date: 20160418
  Receipt Date: 20160418
  Transmission Date: 20160815
  Serious: No
  Sender: FDA-Public Use
  Company Number: None

PATIENT
  Age: 69 Year
  Sex: Female
  Weight: 58.97 kg

DRUGS (8)
  1. ZOLOFT [Concomitant]
     Active Substance: SERTRALINE HYDROCHLORIDE
  2. VITAMIN D [Concomitant]
     Active Substance: CHOLECALCIFEROL
  3. METHYLPREDNISOLONE. [Suspect]
     Active Substance: METHYLPREDNISOLONE
     Indication: SINUS DISORDER
     Dosage: 1 CAPSULE(S) AS DIRECTED TAKEN BY MOUTH
     Route: 048
     Dates: start: 20160323, end: 20160324
  4. TENORMIN [Concomitant]
     Active Substance: ATENOLOL
  5. METHYLPREDNISOLONE. [Suspect]
     Active Substance: METHYLPREDNISOLONE
     Indication: INFLUENZA
     Dosage: 1 CAPSULE(S) AS DIRECTED TAKEN BY MOUTH
     Route: 048
     Dates: start: 20160323, end: 20160324
  6. METHYLPREDNISOLONE. [Suspect]
     Active Substance: METHYLPREDNISOLONE
     Indication: INFLAMMATION
     Dosage: 1 CAPSULE(S) AS DIRECTED TAKEN BY MOUTH
     Route: 048
     Dates: start: 20160323, end: 20160324
  7. NORVASC [Concomitant]
     Active Substance: AMLODIPINE BESYLATE
  8. ONE A DAY CHEWABLES [Concomitant]

REACTIONS (4)
  - No reaction on previous exposure to drug [None]
  - Heart rate increased [None]
  - Incorrect dose administered [None]
  - Inappropriate schedule of drug administration [None]

NARRATIVE: CASE EVENT DATE: 20160324
